FAERS Safety Report 19727574 (Version 1)
Quarter: 2021Q3

REPORT INFORMATION
  Report Type: Spontaneous
  Country: CH (occurrence: CH)
  Receive Date: 20210819
  Receipt Date: 20210819
  Transmission Date: 20211014
  Serious: Yes (Other)
  Sender: FDA-Public Use
  Company Number: CH-BAXTER-2021BAX024943

PATIENT
  Age: 42 Year
  Sex: Male

DRUGS (11)
  1. EPHEDRIN [Suspect]
     Active Substance: EPHEDRINE HYDROCHLORIDE
     Indication: PRODUCT USED FOR UNKNOWN INDICATION
     Route: 065
     Dates: start: 20210708
  2. ULTIVA [Suspect]
     Active Substance: REMIFENTANIL HYDROCHLORIDE
     Indication: STUPOR
     Route: 065
     Dates: start: 20210708
  3. ROBINUL?NEOSTIGMINE [Suspect]
     Active Substance: GLYCOPYRROLATE\NEOSTIGMINE
     Indication: PRODUCT USED FOR UNKNOWN INDICATION
     Dosage: ONE TIME
     Route: 065
     Dates: start: 20210708
  4. CATAPRESAN [Suspect]
     Active Substance: CLONIDINE
     Indication: PRODUCT USED FOR UNKNOWN INDICATION
     Route: 065
     Dates: start: 20210708
  5. VOLTARENE (DICLOFENAC DIETHYLAMINE) [Suspect]
     Active Substance: DICLOFENAC DIETHYLAMINE
     Indication: PRODUCT USED FOR UNKNOWN INDICATION
     Route: 065
     Dates: start: 20210708
  6. SEVOFLURANE BAXTER [Suspect]
     Active Substance: SEVOFLURANE
     Indication: STUPOR
     Dosage: 0.2 TO 0.6 % CONTENT IN EXPIRATION AIR
     Route: 065
     Dates: start: 20210708
  7. ESMERON [Suspect]
     Active Substance: ROCURONIUM BROMIDE
     Indication: PRODUCT USED FOR UNKNOWN INDICATION
     Route: 065
     Dates: start: 20210708
  8. PROPOFOL. [Suspect]
     Active Substance: PROPOFOL
     Indication: PRODUCT USED FOR UNKNOWN INDICATION
     Dosage: APPROX. 2.5?3 MG/H, ONE?TIME 998 MG
     Route: 065
     Dates: start: 20210708
  9. MEPHAMESON [Suspect]
     Active Substance: DEXAMETHASONE
     Indication: PRODUCT USED FOR UNKNOWN INDICATION
     Dosage: ONE TIME
     Route: 065
  10. FENTANYLUM (FENTANYL) [Suspect]
     Active Substance: FENTANYL
     Indication: PRODUCT USED FOR UNKNOWN INDICATION
     Route: 065
     Dates: start: 20210708
  11. NORADRENALINE [Suspect]
     Active Substance: NOREPINEPHRINE
     Indication: PRODUCT USED FOR UNKNOWN INDICATION
     Route: 065
     Dates: start: 20210708

REACTIONS (1)
  - Pulmonary alveolar haemorrhage [Recovering/Resolving]

NARRATIVE: CASE EVENT DATE: 20210708
